FAERS Safety Report 24298195 (Version 1)
Quarter: 2024Q3

REPORT INFORMATION
  Report Type: Spontaneous
  Country: US (occurrence: US)
  Receive Date: 20240909
  Receipt Date: 20240909
  Transmission Date: 20241017
  Serious: Yes (Hospitalization)
  Sender: ALKERMES
  Company Number: US-ALKERMES INC.-ALK-2024-002232

PATIENT
  Age: 8 Decade
  Sex: Female

DRUGS (1)
  1. ARISTADA [Suspect]
     Active Substance: ARIPIPRAZOLE LAUROXIL
     Indication: Schizoaffective disorder bipolar type
     Dosage: UNK
     Route: 065

REACTIONS (4)
  - Psychotic disorder [Not Recovered/Not Resolved]
  - Off label use [Unknown]
  - Therapeutic product ineffective for unapproved indication [Not Recovered/Not Resolved]
  - Cognitive disorder [Not Recovered/Not Resolved]
